FAERS Safety Report 24080630 (Version 1)
Quarter: 2024Q3

REPORT INFORMATION
  Report Type: Report from Study
  Country: AT (occurrence: AT)
  Receive Date: 20240711
  Receipt Date: 20240711
  Transmission Date: 20241017
  Serious: Yes (Hospitalization)
  Sender: PFIZER
  Company Number: AT-PFIZER INC-PV202400090502

PATIENT
  Age: 84 Year
  Sex: Female
  Weight: 65 kg

DRUGS (25)
  1. PALBOCICLIB [Suspect]
     Active Substance: PALBOCICLIB
     Indication: Breast cancer
     Dosage: 125 MG, CYCLIC (DAILY FROM DAY 1 TO DAY 21 EVERY 28-DAY CYCLE)
     Route: 048
     Dates: start: 20230505
  2. FULVESTRANT [Suspect]
     Active Substance: FULVESTRANT
     Indication: Breast cancer
     Dosage: 500 MG, CYCLIC (DAY 1 OF 28-DAY CYCLE)
     Route: 030
     Dates: start: 20230428
  3. DICLOFENAC DIETHYLAMINE [Concomitant]
     Active Substance: DICLOFENAC DIETHYLAMINE
     Route: 061
  4. TIZANIDINE [Concomitant]
     Active Substance: TIZANIDINE
     Route: 048
  5. CALCIDURAN [ASCORBIC ACID;CALCIUM PHOSPHATE DIBASIC;COLECALCIFEROL] [Concomitant]
     Indication: Osteopenia
     Dosage: UNK
     Route: 048
     Dates: start: 19930101
  6. KETOCONAZOLE [Concomitant]
     Active Substance: KETOCONAZOLE
     Indication: Dandruff
     Dosage: FUNGORAL MED. SHAMPOO
     Route: 061
     Dates: start: 20080101
  7. ESTRIOL [Concomitant]
     Active Substance: ESTRIOL
     Indication: Vulvovaginal dryness
     Dosage: OVESTIN OVULA
     Route: 067
     Dates: start: 20140721
  8. ESTRIOL [Concomitant]
     Active Substance: ESTRIOL
     Indication: Vulvovaginal dryness
     Dosage: OVESTIN CREME ESTRIOL
     Route: 067
     Dates: start: 20140721
  9. ASPIRIN [Concomitant]
     Active Substance: ASPIRIN
     Indication: Right ventricular hypertrophy
     Dosage: UNK
     Route: 048
     Dates: start: 20160615
  10. ASPIRIN [Concomitant]
     Active Substance: ASPIRIN
     Indication: Bundle branch block right
  11. DIFLUCORTOLONE VALERATE\ISOCONAZOLE NITRATE [Concomitant]
     Active Substance: DIFLUCORTOLONE VALERATE\ISOCONAZOLE NITRATE
     Indication: Uterovaginal prolapse
     Dosage: TRAVOCORT CREME
     Route: 061
     Dates: start: 2020
  12. CYANOCOBALAMIN\PYRIDOXINE\RIBOFLAVIN\THIAMINE [Concomitant]
     Active Substance: CYANOCOBALAMIN\PYRIDOXINE\RIBOFLAVIN\THIAMINE
     Indication: Formication
     Dosage: UNK
     Route: 048
     Dates: start: 20221201
  13. GINKGO [Concomitant]
     Active Substance: GINKGO
     Indication: Vertigo
     Dosage: UNK
     Route: 048
     Dates: start: 20221201
  14. AMLODIPINE BESYLATE\HYDROCHLOROTHIAZIDE\VALSARTAN [Concomitant]
     Active Substance: AMLODIPINE BESYLATE\HYDROCHLOROTHIAZIDE\VALSARTAN
     Indication: Hypertension
     Dosage: UNK
     Route: 048
     Dates: start: 20230220
  15. LIDOCAINE HYDROCHLORIDE [Concomitant]
     Active Substance: LIDOCAINE HYDROCHLORIDE
     Indication: Arthralgia
     Dosage: XYLONEURAL AMPULLLE
     Route: 014
     Dates: start: 20230228
  16. DIAZEPAM [Concomitant]
     Active Substance: DIAZEPAM
     Indication: Anxiety disorder
     Dosage: PSYCHOPAX TROPFEN
     Route: 048
     Dates: start: 20230301
  17. DIPYRONE [Concomitant]
     Active Substance: DIPYRONE
     Indication: Pain
     Dosage: UNK
     Route: 048
     Dates: start: 20230426
  18. XGEVA [Concomitant]
     Active Substance: DENOSUMAB
     Indication: Prophylaxis
     Dosage: X-GEVA INJEKTIONSLOSUNG
     Route: 058
     Dates: start: 20230428
  19. BETAISODONA [Concomitant]
     Active Substance: POVIDONE-IODINE
     Indication: Vulvovaginal injury
     Dosage: UNK
     Route: 067
     Dates: start: 20230616
  20. LORAZEPAM [Concomitant]
     Active Substance: LORAZEPAM
     Indication: Anxiety disorder
     Dosage: UNK
     Route: 048
     Dates: start: 20240503
  21. VOLTAREN RETARD [DICLOFENAC] [Concomitant]
     Indication: Arthralgia
     Dosage: VOLTAREN RET FTBL
     Route: 048
     Dates: start: 20240519
  22. MAGNESIUM CARBONATE\MAGNESIUM OXIDE [Concomitant]
     Active Substance: MAGNESIUM CARBONATE\MAGNESIUM OXIDE
     Indication: Muscle spasms
     Dosage: MAGNOSOLV GRAN BTL
     Route: 048
     Dates: start: 20240527
  23. ATORVASTATIN [Concomitant]
     Active Substance: ATORVASTATIN
     Indication: Prophylaxis
     Dosage: UNK
     Route: 048
     Dates: start: 20240527
  24. PANTOPRAZOLE [Concomitant]
     Active Substance: PANTOPRAZOLE
     Indication: Prophylaxis
     Dosage: PANTOPRAZOL MSR TBL
     Route: 048
     Dates: start: 20240527
  25. CEFUROXIME [Concomitant]
     Active Substance: CEFUROXIME
     Indication: Urinary tract infection
     Dosage: UNK
     Route: 048
     Dates: start: 20240603

REACTIONS (1)
  - General physical health deterioration [Recovered/Resolved]

NARRATIVE: CASE EVENT DATE: 20240626
